FAERS Safety Report 10351339 (Version 2)
Quarter: 2014Q3

REPORT INFORMATION
  Report Type: Spontaneous
  Country: AR (occurrence: AR)
  Receive Date: 20140730
  Receipt Date: 20140730
  Transmission Date: 20150326
  Serious: Yes (Death)
  Sender: FDA-Public Use
  Company Number: AR-BANPHARM-20142893

PATIENT
  Age: 68 Year
  Sex: Male

DRUGS (6)
  1. AMANTADINE UNKNOWN PRODUCT [Suspect]
     Active Substance: AMANTADINE
     Indication: PARKINSON^S DISEASE
     Dosage: DF 300 MG,
  2. LEVODOPA [Suspect]
     Active Substance: LEVODOPA
     Dosage: DF 1000 MG,
  3. PIRIBEDIL [Suspect]
     Active Substance: PIRIBEDIL
     Dosage: DF 150 MG,
  4. CARBIDOPA. [Suspect]
     Active Substance: CARBIDOPA
     Dosage: DF 100 MG,
  5. CLONAZEPAM. [Suspect]
     Active Substance: CLONAZEPAM
     Dosage: DF 2 MG,
  6. ATORVASTATIN [Concomitant]
     Active Substance: ATORVASTATIN
     Dosage: DF 10 MG, QD,

REACTIONS (1)
  - Sudden death [Fatal]
